FAERS Safety Report 6771282-6 (Version None)
Quarter: 2010Q2

REPORT INFORMATION
  Report Type: 
  Country: None (occurrence: None)
  Receive Date: 20100616
  Receipt Date: 20100609
  Transmission Date: 20101027
  Serious: Yes (Hospitalization, Other)
  Sender: FDA-Public Use
  Company Number: PHHY2010BR38083

PATIENT
  Sex: Female

DRUGS (1)
  1. EXELON [Suspect]
     Dosage: 9 MG, UNK
     Route: 062

REACTIONS (3)
  - BLOOD PRESSURE FLUCTUATION [None]
  - PNEUMONIA [None]
  - URINARY TRACT DISORDER [None]
